FAERS Safety Report 4367930-0 (Version None)
Quarter: 2004Q2

REPORT INFORMATION
  Report Type: 
  Country: None (occurrence: None)
  Receive Date: 20040602
  Receipt Date: 20040520
  Transmission Date: 20050107
  Serious: Yes (Death, Hospitalization)
  Sender: FDA-Public Use
  Company Number: PHEH2004US05604

PATIENT
  Age: 72 Year
  Sex: Female

DRUGS (1)
  1. FEMARA [Suspect]
     Indication: CARCINOMA
     Dates: start: 20020201, end: 20020601

REACTIONS (2)
  - COAGULOPATHY [None]
  - DEATH [None]
